FAERS Safety Report 18661890 (Version 1)
Quarter: 2020Q4

REPORT INFORMATION
  Report Type: Report from Study
  Country: DE (occurrence: DE)
  Receive Date: 20201224
  Receipt Date: 20201224
  Transmission Date: 20210114
  Serious: Yes (Hospitalization)
  Sender: FDA-Public Use
  Company Number: DE-TAKEDA-DE201714722

PATIENT

DRUGS (18)
  1. ADVATE [Suspect]
     Active Substance: ANTIHEMOPHILIC FACTOR, HUMAN RECOMBINANT
     Indication: PROPHYLAXIS
     Dosage: UNK, 1X/DAY:QD 5 DAYS PRIOR TO THE COLONOSCOPY AND ESOPHAGODUODENOSCOPY
     Route: 042
  2. ADVATE [Suspect]
     Active Substance: ANTIHEMOPHILIC FACTOR, HUMAN RECOMBINANT
     Dosage: 2000 IU, ONE DOSE
     Route: 042
     Dates: start: 20170420
  3. VOLTAREN [Concomitant]
     Active Substance: DICLOFENAC SODIUM
     Indication: ANALGESIC THERAPY
     Dosage: 25 MILLIGRAM
     Route: 048
     Dates: end: 20120425
  4. TETRAZEPAM [Concomitant]
     Active Substance: TETRAZEPAM
     Indication: MUSCLE RELAXANT THERAPY
     Dosage: 50 MILLIGRAM
     Route: 048
     Dates: start: 20120425
  5. ADVATE [Suspect]
     Active Substance: ANTIHEMOPHILIC FACTOR, HUMAN RECOMBINANT
     Dosage: 2000 IU, ONE DOSE
     Route: 042
     Dates: start: 20170421
  6. ADVATE [Suspect]
     Active Substance: ANTIHEMOPHILIC FACTOR, HUMAN RECOMBINANT
     Dosage: 2000 IU, ONE DOSE
     Route: 042
     Dates: start: 20170421
  7. ADVATE [Suspect]
     Active Substance: ANTIHEMOPHILIC FACTOR, HUMAN RECOMBINANT
     Indication: PROPHYLAXIS
     Dosage: UNK, 1X/DAY:QD 5 DAYS PRIOR TO THE COLONOSCOPY AND ESOPHAGODUODENOSCOPY
     Route: 042
  8. ADVATE [Suspect]
     Active Substance: ANTIHEMOPHILIC FACTOR, HUMAN RECOMBINANT
     Dosage: 2000 IU, ONE DOSE
     Route: 042
     Dates: start: 20170420
  9. ADVATE [Suspect]
     Active Substance: ANTIHEMOPHILIC FACTOR, HUMAN RECOMBINANT
     Dosage: 2000 IU, ONE DOSE
     Route: 042
     Dates: start: 20170420
  10. ZINC. [Concomitant]
     Active Substance: ZINC
     Indication: MUSCLE SPASMS
     Dosage: UNK
     Route: 048
     Dates: start: 201508
  11. ADVATE [Suspect]
     Active Substance: ANTIHEMOPHILIC FACTOR, HUMAN RECOMBINANT
     Indication: FACTOR VIII DEFICIENCY
     Dosage: 2000 IU, QOD
     Route: 042
     Dates: start: 20110419, end: 20170420
  12. PANTOZOL [ERYTHROMYCIN ETHYLSUCCINATE;SULFAFURAZOLE] [Concomitant]
     Indication: PRODUCT USED FOR UNKNOWN INDICATION
     Dosage: 20 MILLIGRAM, QD
     Route: 048
     Dates: start: 201407
  13. ADVATE [Suspect]
     Active Substance: ANTIHEMOPHILIC FACTOR, HUMAN RECOMBINANT
     Indication: FACTOR VIII DEFICIENCY
     Dosage: 2000 IU, QOD
     Route: 042
     Dates: start: 20110419, end: 20170420
  14. ADVATE [Suspect]
     Active Substance: ANTIHEMOPHILIC FACTOR, HUMAN RECOMBINANT
     Indication: FACTOR VIII DEFICIENCY
     Dosage: 2000 IU, QOD
     Route: 042
     Dates: start: 20110419, end: 20170420
  15. ADVATE [Suspect]
     Active Substance: ANTIHEMOPHILIC FACTOR, HUMAN RECOMBINANT
     Dosage: 2000 IU, ONE DOSE
     Route: 042
     Dates: start: 20170421
  16. ARCOXIA [Concomitant]
     Active Substance: ETORICOXIB
     Indication: ANALGESIC THERAPY
     Dosage: 60 MILLIGRAM, 1 TO 2 TIMES A DAY
     Route: 048
     Dates: start: 20100430
  17. ADVATE [Suspect]
     Active Substance: ANTIHEMOPHILIC FACTOR, HUMAN RECOMBINANT
     Indication: PROPHYLAXIS
     Dosage: UNK, 1X/DAY:QD 5 DAYS PRIOR TO THE COLONOSCOPY AND ESOPHAGODUODENOSCOPY
     Route: 042
  18. MAGNESIUM [Concomitant]
     Active Substance: MAGNESIUM
     Indication: MUSCLE SPASMS
     Dosage: UNK
     Route: 048
     Dates: start: 201508

REACTIONS (2)
  - Gastritis [Unknown]
  - Abdominal discomfort [Recovering/Resolving]

NARRATIVE: CASE EVENT DATE: 20161201
